FAERS Safety Report 4932260-2 (Version None)
Quarter: 2006Q1

REPORT INFORMATION
  Report Type: 
  Country: None (occurrence: None)
  Receive Date: 20060303
  Receipt Date: 20060112
  Transmission Date: 20060701
  Serious: Yes (Hospitalization)
  Sender: FDA-Public Use
  Company Number: US-BRISTOL-MYERS SQUIBB COMPANY-13244470

PATIENT
  Age: 64 Year
  Sex: Female

DRUGS (9)
  1. CISPLATIN [Suspect]
     Indication: NON-SMALL CELL LUNG CANCER
     Route: 041
     Dates: start: 20051220, end: 20051220
  2. TS-1 [Suspect]
     Indication: NON-SMALL CELL LUNG CANCER
     Route: 048
     Dates: start: 20051220, end: 20060101
  3. LEXAPRO [Concomitant]
     Indication: DEPRESSION
     Route: 048
     Dates: start: 20051227
  4. ZOFRAN [Concomitant]
     Indication: NAUSEA
     Route: 048
     Dates: start: 20051227
  5. PERCOCET [Concomitant]
     Indication: PAIN
     Route: 048
     Dates: start: 20051028
  6. SYNTHROID [Concomitant]
     Indication: HYPOTHYROIDISM
     Route: 048
     Dates: start: 19950101
  7. XOPENEX [Concomitant]
     Indication: CHRONIC OBSTRUCTIVE PULMONARY DISEASE
     Route: 055
     Dates: start: 20051110
  8. PULMICORT [Concomitant]
     Route: 055
  9. OXYGEN [Concomitant]
     Route: 045
     Dates: start: 20051110

REACTIONS (19)
  - BLOOD ALBUMIN DECREASED [None]
  - BLOOD CALCIUM DECREASED [None]
  - BLOOD GLUCOSE INCREASED [None]
  - COUGH [None]
  - CREATINE PHOSPHOKINASE DECREASED [None]
  - DEHYDRATION [None]
  - DYSPNOEA EXERTIONAL [None]
  - GLOMERULAR FILTRATION RATE DECREASED [None]
  - GLUCOSE URINE PRESENT [None]
  - HEART RATE INCREASED [None]
  - INTERNATIONAL NORMALISED RATIO INCREASED [None]
  - JOINT SWELLING [None]
  - NAUSEA [None]
  - NEUTROPENIA [None]
  - ORAL INTAKE REDUCED [None]
  - PROTHROMBIN TIME PROLONGED [None]
  - SINUS TACHYCARDIA [None]
  - TREMOR [None]
  - VOMITING [None]
